FAERS Safety Report 6584743-X (Version None)
Quarter: 2010Q1

REPORT INFORMATION
  Report Type: 
  Country: None (occurrence: None)
  Receive Date: 20100217
  Receipt Date: 20100209
  Transmission Date: 20100710
  Serious: Yes (Other)
  Sender: FDA-Public Use
  Company Number: PHHY2009BR40850

PATIENT
  Age: 76 Year
  Sex: Male

DRUGS (1)
  1. FORASEQ [Suspect]
     Dosage: 12/400 MCG

REACTIONS (7)
  - ASTHENIA [None]
  - BACTERIAL DIARRHOEA [None]
  - BLOOD PRESSURE DECREASED [None]
  - CHEST DISCOMFORT [None]
  - DYSPNOEA [None]
  - SOMNOLENCE [None]
  - TREATMENT NONCOMPLIANCE [None]
